FAERS Safety Report 21632079 (Version 1)
Quarter: 2022Q4

REPORT INFORMATION
  Report Type: Spontaneous
  Country: CG (occurrence: CG)
  Receive Date: 20221123
  Receipt Date: 20221123
  Transmission Date: 20230113
  Serious: Yes (Other)
  Sender: FDA-Public Use
  Company Number: CG-SUN PHARMACEUTICAL INDUSTRIES LTD-2022RR-364387

PATIENT
  Age: 29 Year
  Sex: Male

DRUGS (12)
  1. ACETAMINOPHEN [Suspect]
     Active Substance: ACETAMINOPHEN
     Indication: Hepatitis
     Dosage: 1 GRAM, DAILY
     Route: 040
  2. ACETAMINOPHEN [Suspect]
     Active Substance: ACETAMINOPHEN
     Indication: Cholecystitis
  3. DICLOFENAC [Suspect]
     Active Substance: DICLOFENAC
     Indication: Hepatitis
     Dosage: 75 MILLIGRAM, DAILY
     Route: 040
  4. DICLOFENAC [Suspect]
     Active Substance: DICLOFENAC
     Indication: Cholecystitis
  5. CEFUROXIME [Suspect]
     Active Substance: CEFUROXIME
     Indication: Hepatitis
     Dosage: 500 MILLIGRAM, BID
     Route: 048
  6. CEFUROXIME [Suspect]
     Active Substance: CEFUROXIME
     Indication: Cholecystitis
  7. RABEPRAZOLE [Suspect]
     Active Substance: RABEPRAZOLE
     Indication: Cholecystitis
     Dosage: 20 MILLIGRAM, BID
     Route: 048
  8. RABEPRAZOLE [Suspect]
     Active Substance: RABEPRAZOLE
     Indication: Hepatitis
  9. LACTATED RINGERS SOLUTION [Suspect]
     Active Substance: CALCIUM CHLORIDE\POTASSIUM CHLORIDE\SODIUM CHLORIDE\SODIUM LACTATE
     Indication: Hepatitis
     Dosage: 1 LITER, DAILY
     Route: 040
  10. LACTATED RINGERS SOLUTION [Suspect]
     Active Substance: CALCIUM CHLORIDE\POTASSIUM CHLORIDE\SODIUM CHLORIDE\SODIUM LACTATE
     Indication: Cholecystitis
  11. VITAMINS [Suspect]
     Active Substance: VITAMINS
     Indication: Hepatitis
     Dosage: UNK
     Route: 048
  12. VITAMINS [Suspect]
     Active Substance: VITAMINS
     Indication: Cholecystitis

REACTIONS (2)
  - Drug ineffective [Unknown]
  - Hepatic enzyme increased [Unknown]
